FAERS Safety Report 4363878-6 (Version None)
Quarter: 2004Q2

REPORT INFORMATION
  Report Type: 
  Country: None (occurrence: None)
  Receive Date: 20040519
  Receipt Date: 20040507
  Transmission Date: 20050107
  Serious: Yes (Hospitalization)
  Sender: FDA-Public Use
  Company Number: 2004AP02576

PATIENT
  Age: 36 Year
  Sex: Female
  Weight: 70 kg

DRUGS (3)
  1. NEXIUM [Suspect]
     Indication: OESOPHAGEAL DISORDER
     Dosage: 40 MG DAILY PO
     Route: 048
     Dates: start: 20030217
  2. CELESTONE [Concomitant]
  3. ELOCON [Concomitant]

REACTIONS (5)
  - ABDOMINAL PAIN [None]
  - FAECAL INCONTINENCE [None]
  - HYPERHIDROSIS [None]
  - SYNCOPE [None]
  - TACHYCARDIA [None]
